FAERS Safety Report 18722485 (Version 1)
Quarter: 2021Q1

REPORT INFORMATION
  Report Type: Spontaneous
  Country: PL (occurrence: PL)
  Receive Date: 20210111
  Receipt Date: 20210111
  Transmission Date: 20210419
  Serious: Yes (Other)
  Sender: FDA-Public Use
  Company Number: PL-SUN PHARMACEUTICAL INDUSTRIES LTD-2020RR-274687

PATIENT
  Age: 28 Year
  Sex: Female

DRUGS (8)
  1. GEMCITABINE. [Suspect]
     Active Substance: GEMCITABINE
     Indication: HORMONE RECEPTOR POSITIVE BREAST CANCER
     Dosage: EIGHT INFUSIONS
     Route: 065
  2. DOCETAXEL. [Suspect]
     Active Substance: DOCETAXEL
     Indication: NEOPLASM MALIGNANT
     Dosage: THREE COURSES
     Route: 065
  3. PACLITAXEL. [Suspect]
     Active Substance: PACLITAXEL
     Indication: HORMONE RECEPTOR POSITIVE BREAST CANCER
     Dosage: FIVE INFUSIONS
     Route: 065
  4. CAPECITABINE. [Suspect]
     Active Substance: CAPECITABINE
     Indication: HORMONE RECEPTOR POSITIVE BREAST CANCER
     Dosage: TWO INFUSIONS
     Route: 065
  5. VINORELBINE [Suspect]
     Active Substance: VINORELBINE TARTRATE
     Indication: HORMONE RECEPTOR POSITIVE BREAST CANCER
  6. DOXORUBICIN [Suspect]
     Active Substance: DOXORUBICIN
     Indication: NEOPLASM MALIGNANT
     Dosage: FOUR COURSES
     Route: 065
  7. CISPLATIN. [Suspect]
     Active Substance: CISPLATIN
     Indication: HORMONE RECEPTOR POSITIVE BREAST CANCER
     Dosage: TWO INFUSIONS
     Route: 065
  8. CYCLOPHOSPHAMIDE. [Suspect]
     Active Substance: CYCLOPHOSPHAMIDE
     Indication: NEOPLASM MALIGNANT
     Dosage: FOUR COURSES
     Route: 065

REACTIONS (3)
  - Drug ineffective [Unknown]
  - Breast cancer recurrent [Unknown]
  - Hormone receptor positive breast cancer [Unknown]
